FAERS Safety Report 5564234-5 (Version None)
Quarter: 2007Q4

REPORT INFORMATION
  Report Type: 
  Country: None (occurrence: None)
  Receive Date: 20071217
  Receipt Date: 20071205
  Transmission Date: 20080405
  Serious: Yes (Death)
  Sender: FDA-Public Use
  Company Number: FR-GENENTECH-249330

PATIENT
  Sex: Female
  Weight: 74.83 kg

DRUGS (10)
  1. RITUXIMAB [Suspect]
     Indication: DRUG USE FOR UNKNOWN INDICATION
  2. ASPARAGINASE [Suspect]
     Indication: DRUG USE FOR UNKNOWN INDICATION
     Dosage: 10000 IU, UNK
     Route: 042
     Dates: start: 20070606
  3. VORICONAZOLE [Concomitant]
     Indication: DRUG USE FOR UNKNOWN INDICATION
  4. ROCEPHIN [Concomitant]
     Indication: DRUG USE FOR UNKNOWN INDICATION
  5. OFLOCET [Concomitant]
     Indication: DRUG USE FOR UNKNOWN INDICATION
  6. BACTRIM [Concomitant]
     Indication: DRUG USE FOR UNKNOWN INDICATION
  7. TRIFLUCAN [Concomitant]
     Indication: DRUG USE FOR UNKNOWN INDICATION
  8. ZELITREX [Concomitant]
     Indication: DRUG USE FOR UNKNOWN INDICATION
  9. LUTENYL [Concomitant]
     Indication: DRUG USE FOR UNKNOWN INDICATION
  10. HEPARIN [Concomitant]
     Indication: DRUG USE FOR UNKNOWN INDICATION

REACTIONS (2)
  - ACUTE RESPIRATORY FAILURE [None]
  - MULTI-ORGAN FAILURE [None]
